FAERS Safety Report 9753630 (Version 1)
Quarter: 2013Q4

REPORT INFORMATION
  Report Type: Report from Study
  Country: AR (occurrence: AR)
  Receive Date: 20131213
  Receipt Date: 20131213
  Transmission Date: 20140711
  Serious: Yes (Hospitalization)
  Sender: FDA-Public Use
  Company Number: PHHY2013AR146132

PATIENT
  Age: 50 Year
  Sex: Female

DRUGS (1)
  1. DIOVAN D [Suspect]
     Indication: BLOOD PRESSURE ABNORMAL
     Dosage: 1 DF (320/12.5), A DAY
     Route: 048

REACTIONS (2)
  - Malaise [Recovering/Resolving]
  - Vertigo [Recovering/Resolving]
